FAERS Safety Report 18730527 (Version 3)
Quarter: 2021Q1

REPORT INFORMATION
  Report Type: Spontaneous
  Country: US (occurrence: US)
  Receive Date: 20210112
  Receipt Date: 20210216
  Transmission Date: 20210419
  Serious: Yes (Hospitalization, Other)
  Sender: FDA-Public Use
  Company Number: US-PFIZER INC-2020072440

PATIENT
  Age: 66 Year
  Sex: Male
  Weight: 95.24 kg

DRUGS (1)
  1. CAVERJECT [Suspect]
     Active Substance: ALPROSTADIL
     Indication: SEXUAL DYSFUNCTION
     Dosage: UNK, AS NEEDED (INJECT INTRACORPORAL)

REACTIONS (3)
  - Renal disorder [Unknown]
  - Off label use [Unknown]
  - Product use issue [Unknown]
